FAERS Safety Report 16845518 (Version 2)
Quarter: 2019Q4

REPORT INFORMATION
  Report Type: Spontaneous
  Country: US (occurrence: US)
  Receive Date: 20190924
  Receipt Date: 20191022
  Transmission Date: 20200122
  Serious: Yes (Other)
  Sender: FDA-Public Use
  Company Number: US-SUNOVION-2019SUN003879

PATIENT
  Sex: Female

DRUGS (2)
  1. LUNESTA [Suspect]
     Active Substance: ESZOPICLONE
     Dosage: 1 MG
     Route: 048
     Dates: start: 2005
  2. ESZOPICLONE. [Suspect]
     Active Substance: ESZOPICLONE
     Dosage: 1 MG
     Route: 065

REACTIONS (3)
  - Lyme disease [Recovering/Resolving]
  - Insomnia [Unknown]
  - Hangover [Unknown]
